FAERS Safety Report 5393806-6 (Version None)
Quarter: 2007Q3

REPORT INFORMATION
  Report Type: 
  Country: None (occurrence: None)
  Receive Date: 20070723
  Receipt Date: 20070712
  Transmission Date: 20080115
  Serious: Yes (Hospitalization, Other)
  Sender: FDA-Public Use
  Company Number: BR-AVENTIS-200716422GDDC

PATIENT
  Age: 46 Year
  Sex: Female

DRUGS (2)
  1. ARAVA [Suspect]
     Indication: RHEUMATOID ARTHRITIS
     Dosage: DOSE: 1 TABLET
     Route: 048
     Dates: start: 20070301, end: 20070603
  2. PREDNISONE [Concomitant]
     Indication: ARTHRITIS
     Dosage: DOSE: 1 TABLET
     Route: 048
     Dates: start: 20070301, end: 20070603

REACTIONS (10)
  - DIARRHOEA [None]
  - GENERALISED OEDEMA [None]
  - HEADACHE [None]
  - HEPATIC FAILURE [None]
  - LEUKOPENIA [None]
  - PAIN IN EXTREMITY [None]
  - PYREXIA [None]
  - SEPSIS [None]
  - STEVENS-JOHNSON SYNDROME [None]
  - VOMITING [None]
